FAERS Safety Report 7117882-5 (Version None)
Quarter: 2010Q4

REPORT INFORMATION
  Report Type: 
  Country: None (occurrence: None)
  Receive Date: 20101118
  Receipt Date: 20101118
  Transmission Date: 20110411
  Serious: Yes (Hospitalization)
  Sender: FDA-Public Use
  Company Number: None

PATIENT
  Age: 80 Year
  Sex: Male
  Weight: 84 kg

DRUGS (1)
  1. CYCLOBENZAPRINE [Suspect]
     Indication: PAIN
     Dosage: 10 MG TID PO
     Route: 048
     Dates: start: 20100426, end: 20100501

REACTIONS (2)
  - BLOOD CREATINE PHOSPHOKINASE INCREASED [None]
  - TREMOR [None]
